FAERS Safety Report 4564145-8 (Version None)
Quarter: 2005Q1

REPORT INFORMATION
  Report Type: 
  Country: None (occurrence: None)
  Receive Date: 20050128
  Receipt Date: 20020417
  Transmission Date: 20050727
  Serious: Yes (Hospitalization, Other)
  Sender: FDA-Public Use
  Company Number: US-MERCK-0204USA02151

PATIENT
  Age: 42 Year
  Sex: Male
  Weight: 84 kg

DRUGS (5)
  1. VIOXX [Suspect]
     Indication: BACK PAIN
     Route: 048
     Dates: start: 20010119
  2. VIOXX [Suspect]
     Indication: INFLAMMATION
     Route: 048
     Dates: start: 20010119
  3. PERCOCET [Concomitant]
     Indication: PAIN
     Route: 065
  4. OMEGA-3 [Concomitant]
     Route: 065
  5. GINKGO BILOBA EXTRACT [Concomitant]
     Route: 065

REACTIONS (11)
  - BACK INJURY [None]
  - BACK PAIN [None]
  - DIFFICULTY IN WALKING [None]
  - HYPOAESTHESIA [None]
  - MONOPLEGIA [None]
  - PAIN IN EXTREMITY [None]
  - PHLEBITIS [None]
  - ROAD TRAFFIC ACCIDENT [None]
  - SENSORY LOSS [None]
  - THERMAL BURN [None]
  - THROMBOSIS [None]
